FAERS Safety Report 9170052 (Version 1)
Quarter: 2013Q1

REPORT INFORMATION
  Report Type: Spontaneous
  Country: US (occurrence: None)
  Receive Date: 20130307
  Receipt Date: 20130307
  Transmission Date: 20140127
  Serious: Yes (Other)
  Sender: FDA-Public Use
  Company Number: TPA2012A06278

PATIENT
  Age: 65 Year
  Sex: Male
  Weight: 111.13 kg

DRUGS (5)
  1. ACTOS (PIOGLITAZONE HYDROCHLORIDE) [Suspect]
     Indication: TYPE 2 DIABETES MELLITUS
     Dates: start: 201002, end: 201110
  2. METFORMIN (METFORMIN) [Concomitant]
  3. GLUCOTROL (GLIPIZIDE) TABLETS [Concomitant]
  4. JANUVIA (SITAGLIPTIN PHOSPHATE) [Concomitant]
  5. GLYBURIDE/METFORMIN (METFORMIN HYDROCHLORIDE, GLIBENCLAMIDE) [Concomitant]

REACTIONS (1)
  - Bladder cancer [None]
